FAERS Safety Report 14205976 (Version 2)
Quarter: 2017Q4

REPORT INFORMATION
  Report Type: Spontaneous
  Country: BR (occurrence: BR)
  Receive Date: 20171120
  Receipt Date: 20171204
  Transmission Date: 20180321
  Serious: Yes (Other)
  Sender: FDA-Public Use
  Company Number: BR-INCYTE CORPORATION-2017IN009863

PATIENT

DRUGS (1)
  1. JAKAVI [Suspect]
     Active Substance: RUXOLITINIB
     Indication: MYELOFIBROSIS
     Dosage: 20 MG, BID
     Route: 065

REACTIONS (11)
  - Intentional overdose [Unknown]
  - Erythroblast count abnormal [Unknown]
  - Haemoglobin decreased [Unknown]
  - Haematocrit abnormal [Unknown]
  - Erythroid series abnormal [Unknown]
  - Bone marrow failure [Unknown]
  - White blood cell disorder [Unknown]
  - Poikilocytosis [Unknown]
  - Megakaryocytes increased [Unknown]
  - Bone marrow reticulin fibrosis [Unknown]
  - Spleen palpable [Unknown]
